FAERS Safety Report 4318928-X (Version None)
Quarter: 2004Q1

REPORT INFORMATION
  Report Type: 
  Country: None (occurrence: None)
  Receive Date: 20040315
  Receipt Date: 20040301
  Transmission Date: 20041129
  Serious: Yes (Hospitalization, Other)
  Sender: FDA-Public Use
  Company Number: NSADSS2002032288

PATIENT
  Age: 45 Year
  Sex: Male

DRUGS (4)
  1. PLACEBO (PLACEBO) LYOPHILIZED POWDER [Concomitant]
     Indication: RHEUMATOID ARTHRITIS
     Dosage: 1 IN 1 AS NECESSARY, INTRAVENOUS DRIP
     Route: 041
     Dates: start: 20020612, end: 20020612
  2. PLACEBO (PLACEBO) LYOPHILIZED POWDER [Concomitant]
     Indication: RHEUMATOID ARTHRITIS
     Dosage: 1 IN 1 AS NECESSARY, INTRAVENOUS DRIP
     Route: 041
     Dates: start: 20020627, end: 20020627
  3. PLACEBO (PLACEBO) LYOPHILIZED POWDER [Concomitant]
     Indication: RHEUMATOID ARTHRITIS
     Dosage: 1 IN 1 AS NECESSARY, INTRAVENOUS DRIP
     Route: 041
     Dates: start: 20020729, end: 20020729
  4. METHOTREXATE [Suspect]

REACTIONS (10)
  - ALANINE AMINOTRANSFERASE INCREASED [None]
  - ASPARTATE AMINOTRANSFERASE INCREASED [None]
  - HEPATIC ENZYME INCREASED [None]
  - LEIOMYOSARCOMA [None]
  - LIPOSARCOMA [None]
  - LYMPHADENOPATHY [None]
  - METASTASES TO LUNG [None]
  - METASTASIS [None]
  - RENAL CELL CARCINOMA STAGE UNSPECIFIED [None]
  - SPLENOMEGALY [None]
